FAERS Safety Report 8976076 (Version 1)
Quarter: 2012Q4

REPORT INFORMATION
  Report Type: 
  Country: US (occurrence: US)
  Receive Date: 20121219
  Receipt Date: 20121219
  Transmission Date: 20130627
  Serious: No
  Sender: FDA-Public Use
  Company Number: US-AMGEN-USASP2012063372

PATIENT
  Age: 67 Year
  Sex: Female

DRUGS (9)
  1. PROLIA [Suspect]
     Indication: OSTEOPOROSIS POSTMENOPAUSAL
     Dosage: 60 mg, q6mo
     Dates: start: 20120214
  2. PREDNISONE [Concomitant]
     Dosage: UNK
  3. AZITHROMYCIN [Concomitant]
     Dosage: UNK
  4. ARMOUR THYROID [Concomitant]
     Dosage: UNK
  5. ZANTAC [Concomitant]
     Dosage: UNK
  6. TUMS [Concomitant]
     Dosage: UNK
  7. MULTIVITAMIN [Concomitant]
     Dosage: UNK
  8. VITAMIN D [Concomitant]
     Dosage: UNK
  9. JARRO DOPHILUS [Concomitant]
     Dosage: UNK

REACTIONS (3)
  - Candidiasis [Unknown]
  - Fatigue [Unknown]
  - Multimorbidity [Unknown]
